FAERS Safety Report 21610272 (Version 1)
Quarter: 2022Q4

REPORT INFORMATION
  Report Type: Spontaneous
  Country: FR (occurrence: FR)
  Receive Date: 20221117
  Receipt Date: 20221117
  Transmission Date: 20230112
  Serious: Yes (Death, Other)
  Sender: FDA-Public Use
  Company Number: None

PATIENT

DRUGS (12)
  1. PROPRANOLOL [Suspect]
     Active Substance: PROPRANOLOL HYDROCHLORIDE
     Indication: Abdominal pain
     Dosage: 40 MG PER DAY
     Route: 048
     Dates: start: 20220204, end: 20220204
  2. PROPRANOLOL [Suspect]
     Active Substance: PROPRANOLOL HYDROCHLORIDE
     Indication: Off label use
  3. METRONIDAZOLE [Suspect]
     Active Substance: METRONIDAZOLE
     Indication: Colitis
     Dosage: 1000 MG PER DAY
     Route: 065
     Dates: start: 20220119, end: 20220203
  4. TRIMEBUTINE [Suspect]
     Active Substance: TRIMEBUTINE
     Indication: Abdominal pain
     Dosage: 1 ADMINISTRATIONS OF 100MG AT 2:40 A.M. AND 9:50 A.M.
     Route: 042
     Dates: start: 20220202, end: 20220202
  5. TRIMEBUTINE [Suspect]
     Active Substance: TRIMEBUTINE
     Dosage: 100MG IV ? 9H59
     Route: 042
     Dates: start: 20220204, end: 20220204
  6. OFLOXACIN [Suspect]
     Active Substance: OFLOXACIN
     Indication: Colitis
     Dosage: 400 MG PER DAY
     Route: 065
     Dates: start: 20220119, end: 20220203
  7. VANCOMYCIN [Suspect]
     Active Substance: VANCOMYCIN
     Indication: Clostridium difficile colitis
     Dosage: 3 DF
     Route: 048
     Dates: start: 20220203, end: 20220204
  8. ONDANSETRON [Suspect]
     Active Substance: ONDANSETRON
     Indication: Nausea
     Dosage: 4 MG
     Route: 042
     Dates: start: 20220203, end: 20220204
  9. PANTOPRAZOLE [Suspect]
     Active Substance: PANTOPRAZOLE
     Indication: Product used for unknown indication
     Dosage: 40 MG PER DAY
     Route: 048
     Dates: start: 20220203, end: 20220204
  10. ACETAMINOPHEN [Suspect]
     Active Substance: ACETAMINOPHEN
     Indication: Abdominal pain
     Dosage: 2 G PER DAY
     Route: 048
     Dates: start: 20220202, end: 20220204
  11. METOCLOPRAMIDE HYDROCHLORIDE [Concomitant]
     Active Substance: METOCLOPRAMIDE HYDROCHLORIDE
     Indication: Nausea
     Dosage: 10 MG PER DAY
     Route: 042
     Dates: start: 20220202, end: 20220202
  12. PHLOROGLUCINOL\1,3,5-TRIMETHOXYBENZENE [Concomitant]
     Active Substance: PHLOROGLUCINOL\1,3,5-TRIMETHOXYBENZENE
     Indication: Abdominal pain
     Dosage: 120 MG PER DAY
     Route: 042
     Dates: start: 20220202, end: 20220202

REACTIONS (5)
  - Cardio-respiratory arrest [Fatal]
  - Tachycardia [Recovered/Resolved]
  - Product use in unapproved indication [Unknown]
  - Product use issue [Unknown]
  - Off label use [Unknown]

NARRATIVE: CASE EVENT DATE: 20220204
